FAERS Safety Report 12744391 (Version 1)
Quarter: 2016Q3

REPORT INFORMATION
  Report Type: Spontaneous
  Country: US (occurrence: US)
  Receive Date: 20160914
  Receipt Date: 20160914
  Transmission Date: 20161109
  Serious: No
  Sender: FDA-Public Use
  Company Number: US-JAZZ-2016-US-009357

PATIENT
  Sex: Female

DRUGS (16)
  1. FLUOXETINE HCL [Concomitant]
     Active Substance: FLUOXETINE HYDROCHLORIDE
  2. METHYLPHENIDATE. [Concomitant]
     Active Substance: METHYLPHENIDATE
  3. TYLENOL EXTRA STRENGTH [Concomitant]
     Active Substance: ACETAMINOPHEN
  4. XYREM [Suspect]
     Active Substance: SODIUM OXYBATE
     Dosage: 3 G, FIRST DOSE
     Route: 048
     Dates: start: 2016, end: 2016
  5. ALLEGRA ALLERGY [Concomitant]
     Active Substance: FEXOFENADINE HYDROCHLORIDE
  6. PREDNISONE. [Concomitant]
     Active Substance: PREDNISONE
  7. XYREM [Suspect]
     Active Substance: SODIUM OXYBATE
     Dosage: 1.5 G, SECOND DOSE
     Route: 048
     Dates: start: 2016, end: 2016
  8. IBUPROFEN. [Concomitant]
     Active Substance: IBUPROFEN
  9. OMEPRAZOLE. [Concomitant]
     Active Substance: OMEPRAZOLE
  10. BUPROPION HCL [Concomitant]
     Active Substance: BUPROPION HYDROCHLORIDE
  11. CONCERTA [Concomitant]
     Active Substance: METHYLPHENIDATE HYDROCHLORIDE
  12. XYREM [Suspect]
     Active Substance: SODIUM OXYBATE
     Dosage: 3 G, BID
     Route: 048
     Dates: start: 2016
  13. XYREM [Suspect]
     Active Substance: SODIUM OXYBATE
     Indication: NARCOLEPSY
     Dosage: 1.5 G, BID
     Route: 048
     Dates: start: 201604, end: 2016
  14. HYDROXYCHLOROQUINE [Concomitant]
     Active Substance: HYDROXYCHLOROQUINE
  15. MONTELUKAST SODIUM. [Concomitant]
     Active Substance: MONTELUKAST SODIUM
  16. VITAMIN B12 [Concomitant]
     Active Substance: CYANOCOBALAMIN

REACTIONS (6)
  - Nausea [Unknown]
  - Incorrect dose administered [Unknown]
  - Feeling drunk [Unknown]
  - Inappropriate schedule of drug administration [Unknown]
  - Activities of daily living impaired [Unknown]
  - Vomiting [Unknown]

NARRATIVE: CASE EVENT DATE: 2016
